FAERS Safety Report 25368349 (Version 1)
Quarter: 2025Q2

REPORT INFORMATION
  Report Type: Report from Study
  Country: US (occurrence: US)
  Receive Date: 20250528
  Receipt Date: 20250528
  Transmission Date: 20250716
  Serious: Yes (Hospitalization)
  Sender: EISAI
  Company Number: US-Eisai-EC-2025-189916

PATIENT
  Age: 57 Year
  Sex: Male
  Weight: 88.4 kg

DRUGS (7)
  1. LENVIMA [Suspect]
     Active Substance: LENVATINIB
     Indication: Renal cancer
     Dosage: WILL RESUME LENVIMA 3/3/25
     Dates: start: 20230228, end: 2025
  2. LENVIMA [Suspect]
     Active Substance: LENVATINIB
     Dosage: WILL RESUME LENVIMA 3/3/25
     Dates: start: 2025, end: 2025
  3. KEYTRUDA [Concomitant]
     Active Substance: PEMBROLIZUMAB
     Indication: Product used for unknown indication
  4. TYLENOL [Concomitant]
     Active Substance: ACETAMINOPHEN
  5. AMLODIPINE BEYSLATE [Concomitant]
  6. LABETALOL [Concomitant]
     Active Substance: LABETALOL
  7. TADALAFIL [Concomitant]
     Active Substance: TADALAFIL

REACTIONS (1)
  - Myocardial infarction [Unknown]

NARRATIVE: CASE EVENT DATE: 20250101
